FAERS Safety Report 12979710 (Version 4)
Quarter: 2016Q4

REPORT INFORMATION
  Report Type: Spontaneous
  Country: JP (occurrence: JP)
  Receive Date: 20161128
  Receipt Date: 20161227
  Transmission Date: 20170207
  Serious: Yes (Hospitalization, Other)
  Sender: FDA-Public Use
  Company Number: JP-GLAXOSMITHKLINE-JP2016JPN172192

PATIENT
  Age: 17 Year
  Sex: Female
  Weight: 43 kg

DRUGS (10)
  1. LAMICTAL [Suspect]
     Active Substance: LAMOTRIGINE
     Dosage: 100 MG, BID
     Route: 048
     Dates: start: 20101207
  2. VALPROATE SODIUM. [Concomitant]
     Active Substance: VALPROATE SODIUM
     Indication: EPILEPSY
     Dosage: UNK
  3. LAMICTAL [Suspect]
     Active Substance: LAMOTRIGINE
     Dosage: 25 MG, BID
     Route: 048
     Dates: start: 20100803
  4. LAMICTAL [Suspect]
     Active Substance: LAMOTRIGINE
     Indication: EPILEPSY
     Dosage: 2 MG, BID
     Route: 048
     Dates: start: 20100524, end: 20100606
  5. LAMICTAL [Suspect]
     Active Substance: LAMOTRIGINE
     Dosage: 50 MG, BID
     Route: 048
     Dates: start: 20101004
  6. LAMICTAL [Suspect]
     Active Substance: LAMOTRIGINE
     Dosage: 5 MG, BID
     Route: 048
     Dates: start: 20100607
  7. LAMICTAL [Suspect]
     Active Substance: LAMOTRIGINE
     Dosage: UNK UNK, BID
     Route: 048
     Dates: start: 20100830
  8. LAMICTAL [Suspect]
     Active Substance: LAMOTRIGINE
     Dosage: 50 MG, BID
     Route: 048
     Dates: start: 20110114
  9. LAMICTAL [Suspect]
     Active Substance: LAMOTRIGINE
     Dosage: 25 MG, BID
     Route: 048
     Dates: start: 20110201, end: 20110207
  10. LAMICTAL [Suspect]
     Active Substance: LAMOTRIGINE
     Dosage: 15 MG, BID
     Route: 048
     Dates: start: 20100705

REACTIONS (7)
  - Rash [Unknown]
  - Selective IgA immunodeficiency [Not Recovered/Not Resolved]
  - Hypogammaglobulinaemia [Recovering/Resolving]
  - Loss of consciousness [Unknown]
  - Pyelonephritis acute [Unknown]
  - Selective IgG subclass deficiency [Recovered/Resolved]
  - Tonic convulsion [Unknown]

NARRATIVE: CASE EVENT DATE: 20101227
